FAERS Safety Report 13053922 (Version 2)
Quarter: 2016Q4

REPORT INFORMATION
  Report Type: Report from Study
  Country: CA (occurrence: CA)
  Receive Date: 20161222
  Receipt Date: 20161226
  Transmission Date: 20170207
  Serious: Yes (Other)
  Sender: FDA-Public Use
  Company Number: PHHY2016CA169414

PATIENT
  Sex: Female

DRUGS (1)
  1. REVOLADE [Suspect]
     Active Substance: ELTROMBOPAG
     Indication: IMMUNE THROMBOCYTOPENIC PURPURA
     Dosage: 75 MG (3 DAYS OF THE WEEK) AND 50MG (4 DAYS OF THE WEEK)
     Route: 048
     Dates: start: 20160701

REACTIONS (3)
  - Platelet count decreased [Recovering/Resolving]
  - Hypersensitivity [Unknown]
  - Cardiac disorder [Unknown]
